FAERS Safety Report 6703633-2 (Version None)
Quarter: 2010Q2

REPORT INFORMATION
  Report Type: 
  Country: None (occurrence: None)
  Receive Date: 20100430
  Receipt Date: 20100419
  Transmission Date: 20101027
  Serious: Yes (Death, Other)
  Sender: FDA-Public Use
  Company Number: US-TYCO HEALTHCARE/MALLINCKRODT-T201001104

PATIENT
  Age: 69 Year
  Sex: Female

DRUGS (2)
  1. OCTREOSCAN [Suspect]
     Indication: CARCINOID TUMOUR OF THE GASTROINTESTINAL TRACT
     Dosage: UNK
  2. OCTREOSCAN [Suspect]
     Dosage: UNK

REACTIONS (4)
  - BLOOD CREATININE ABNORMAL [None]
  - DEATH [None]
  - HAEMOGLOBIN ABNORMAL [None]
  - INTENTIONAL DRUG MISUSE [None]
